FAERS Safety Report 26132730 (Version 1)
Quarter: 2025Q4

REPORT INFORMATION
  Report Type: Spontaneous
  Country: CH (occurrence: CH)
  Receive Date: 20251208
  Receipt Date: 20251208
  Transmission Date: 20260117
  Serious: Yes (Hospitalization, Disabling)
  Sender: AMGEN
  Company Number: CH-AMGEN-CHESP2025239958

PATIENT
  Age: 54 Year
  Sex: Female
  Weight: 86 kg

DRUGS (5)
  1. REPATHA [Suspect]
     Active Substance: EVOLOCUMAB
     Indication: Hyperlipidaemia
     Dosage: 140 MILLIGRAM, Q2WK ONGOING (PLANNED STOP)
     Route: 058
     Dates: start: 20250404
  2. WEGOVY [Suspect]
     Active Substance: SEMAGLUTIDE
     Indication: Obesity
     Dosage: 2.4 MILLIGRAM, QWK CONTINUING (BUT REDUCED DOSE SINCE SEPTEMBER 2025, PLANNED TO BE STOPPED)
     Route: 058
     Dates: start: 20241104
  3. EZETIMIBE [Suspect]
     Active Substance: EZETIMIBE
     Indication: Hyperlipidaemia
     Dosage: 10 MILLIGRAM, QD ONGOING
     Route: 048
     Dates: start: 2024
  4. ASPIRIN [Concomitant]
     Active Substance: ASPIRIN
     Indication: Arteriosclerosis
     Dosage: 100 MILLIGRAM, QD
     Route: 048
     Dates: start: 2024
  5. ETORICOXIB [Concomitant]
     Active Substance: ETORICOXIB
     Indication: Arthritis bacterial
     Dosage: UNK UNK, AS NECESSARY
     Route: 048
     Dates: end: 2025

REACTIONS (1)
  - Lumbosacral plexopathy [Not Recovered/Not Resolved]

NARRATIVE: CASE EVENT DATE: 20250601
